FAERS Safety Report 12860028 (Version 1)
Quarter: 2016Q4

REPORT INFORMATION
  Report Type: Spontaneous
  Country: BR (occurrence: BR)
  Receive Date: 20161019
  Receipt Date: 20161019
  Transmission Date: 20170207
  Serious: Yes (Other)
  Sender: FDA-Public Use
  Company Number: BR-GLAXOSMITHKLINE-BR2016GSK148282

PATIENT
  Sex: Female
  Weight: 126 kg

DRUGS (1)
  1. CATAFLAM PRO XT EMULGEL [Suspect]
     Active Substance: DICLOFENAC DIETHYLAMINE
     Indication: PAIN
     Dosage: UNK, BID
     Route: 061
     Dates: start: 20160920, end: 20160924

REACTIONS (11)
  - Blister [Recovering/Resolving]
  - Cough [Recovering/Resolving]
  - Asphyxia [Recovering/Resolving]
  - Mouth swelling [Recovering/Resolving]
  - Oedema [Recovering/Resolving]
  - Hypersensitivity [Unknown]
  - Swelling face [Recovering/Resolving]
  - Eye swelling [Recovering/Resolving]
  - Scab [Unknown]
  - Rash [Recovering/Resolving]
  - Musculoskeletal discomfort [Unknown]
